FAERS Safety Report 7539422-9 (Version None)
Quarter: 2011Q2

REPORT INFORMATION
  Report Type: 
  Country: None (occurrence: None)
  Receive Date: 20110610
  Receipt Date: 20110525
  Transmission Date: 20111010
  Serious: No
  Sender: FDA-Public Use
  Company Number: US-B.I. PHARMACEUTICALS,INC./RIDGEFIELD-2011-BP-13954BP

PATIENT
  Sex: Female

DRUGS (5)
  1. CORDARONE [Concomitant]
     Indication: ATRIAL FIBRILLATION
     Dosage: 200 MG
     Route: 048
  2. CARBAMAZEPINE [Concomitant]
     Indication: NEUROPATHY PERIPHERAL
     Dosage: 100 MG
     Route: 048
  3. PRADAXA [Suspect]
     Indication: ATRIAL FIBRILLATION
     Dosage: 300 MG
     Route: 048
     Dates: start: 20110304
  4. VASERETIC [Concomitant]
     Indication: HYPERTENSION
     Route: 048
  5. DIOVAN [Concomitant]
     Indication: HYPERTENSION
     Dosage: 100 MG
     Route: 048

REACTIONS (1)
  - VISION BLURRED [None]
